FAERS Safety Report 5584718-3 (Version None)
Quarter: 2008Q1

REPORT INFORMATION
  Report Type: 
  Country: None (occurrence: None)
  Receive Date: 20080108
  Receipt Date: 20071228
  Transmission Date: 20080703
  Serious: Yes (Hospitalization)
  Sender: FDA-Public Use
  Company Number: JP-PFIZER INC-2008001514

PATIENT
  Sex: Male
  Weight: 65 kg

DRUGS (3)
  1. IRINOTECAN HCL [Suspect]
     Indication: LARGE INTESTINE CARCINOMA
     Dosage: DAILY DOSE:210MG
     Route: 042
     Dates: start: 20071210, end: 20071210
  2. TEGAFUR/GIMERACIL/OTERACIL POTASSIUM [Suspect]
     Indication: LARGE INTESTINE CARCINOMA
     Route: 048
     Dates: start: 20071210, end: 20071216
  3. TEGAFUR/GIMERACIL/OTERACIL POTASSIUM [Suspect]
     Dosage: DAILY DOSE:60MG
     Route: 048
     Dates: start: 20071217, end: 20071217

REACTIONS (1)
  - HYPERAMMONAEMIA [None]
